FAERS Safety Report 5047851-0 (Version None)
Quarter: 2006Q3

REPORT INFORMATION
  Report Type: 
  Country: None (occurrence: None)
  Receive Date: 20060706
  Receipt Date: 20060706
  Transmission Date: 20061208
  Serious: Yes (Hospitalization)
  Sender: FDA-Public Use
  Company Number: None

PATIENT
  Age: 54 Year
  Sex: Female
  Weight: 79.3795 kg

DRUGS (1)
  1. THIORIDAZINE HCL [Suspect]
     Indication: BIPOLAR DISORDER
     Dosage: 1 TABLET BY MOUTH AT BEDTIME   AT NIGHT
     Route: 048

REACTIONS (5)
  - MEDICATION ERROR [None]
  - PHARMACEUTICAL PRODUCT COMPLAINT [None]
  - POOR QUALITY DRUG ADMINISTERED [None]
  - SPEECH DISORDER [None]
  - TARDIVE DYSKINESIA [None]
